FAERS Safety Report 4702416-2 (Version None)
Quarter: 2005Q2

REPORT INFORMATION
  Report Type: 
  Country: None (occurrence: None)
  Receive Date: 20050208
  Receipt Date: 20050208
  Transmission Date: 20051028
  Serious: Yes (Other)
  Sender: FDA-Public Use
  Company Number: None

PATIENT
  Sex: Female
  Weight: 142.8831 kg

DRUGS (2)
  1. BENAZEPRIL 10 MG [Suspect]
     Indication: CARDIAC FAILURE CONGESTIVE
     Dosage: 10 MG QD PO
     Route: 048
  2. BENAZEPRIL 10 MG [Suspect]
     Indication: HYPERTENSION
     Dosage: 10 MG QD PO
     Route: 048

REACTIONS (2)
  - ABDOMINAL DISCOMFORT [None]
  - THERAPEUTIC RESPONSE UNEXPECTED WITH DRUG SUBSTITUTION [None]
